FAERS Safety Report 26107671 (Version 1)
Quarter: 2025Q4

REPORT INFORMATION
  Report Type: Spontaneous
  Country: CV (occurrence: None)
  Receive Date: 20251126
  Receipt Date: 20251126
  Transmission Date: 20260118
  Serious: No
  Sender: FDA-CTU
  Company Number: None

PATIENT
  Age: 37 Year
  Sex: Female

DRUGS (1)
  1. TOLVAPTAN [Suspect]
     Active Substance: TOLVAPTAN
     Indication: Congenital cystic kidney disease
     Dosage: 60MG/30MG BID ORAL
     Route: 048
     Dates: start: 20250912, end: 20251027

REACTIONS (2)
  - Renal impairment [None]
  - Acidosis [None]

NARRATIVE: CASE EVENT DATE: 20251027
